FAERS Safety Report 16871296 (Version 2)
Quarter: 2020Q3

REPORT INFORMATION
  Report Type: Spontaneous
  Country: US (occurrence: US)
  Receive Date: 20191001
  Receipt Date: 20200902
  Transmission Date: 20201102
  Serious: Yes (Hospitalization, Other)
  Sender: FDA-Public Use
  Company Number: US-SUN PHARMACEUTICAL INDUSTRIES LTD-2019R1-221473

PATIENT
  Age: 17 Year
  Sex: Male

DRUGS (2)
  1. GUANFACINE. [Suspect]
     Active Substance: GUANFACINE
     Indication: PRODUCT USED FOR UNKNOWN INDICATION
     Dosage: EXTENDED?RELEASE 3MG (189 MG TOTAL)
     Route: 048
  2. OLANZAPINE. [Suspect]
     Active Substance: OLANZAPINE
     Indication: PRODUCT USED FOR UNKNOWN INDICATION
     Dosage: 68 OLANZAPINE 5MG TABLETS (340 MG TOTAL)
     Route: 048

REACTIONS (11)
  - Hypotension [Recovering/Resolving]
  - Suicide attempt [Recovering/Resolving]
  - Agitation [Recovering/Resolving]
  - Presyncope [Unknown]
  - Bradycardia [Recovered/Resolved]
  - Dysarthria [Recovering/Resolving]
  - Hallucination [Recovering/Resolving]
  - Autonomic nervous system imbalance [Recovering/Resolving]
  - Consciousness fluctuating [Recovering/Resolving]
  - Overdose [Unknown]
  - Sinus arrest [Unknown]
